FAERS Safety Report 13241146 (Version 1)
Quarter: 2017Q1

REPORT INFORMATION
  Report Type: Report from Study
  Country: CA (occurrence: CA)
  Receive Date: 20170216
  Receipt Date: 20170216
  Transmission Date: 20170428
  Serious: Yes (Other)
  Sender: FDA-Public Use
  Company Number: CA-GILEAD-2017-0257347

PATIENT
  Age: 54 Year
  Sex: Male
  Weight: 106.12 kg

DRUGS (1)
  1. LEDIPASVIR/SOFOSBUVIR [Suspect]
     Active Substance: LEDIPASVIR\SOFOSBUVIR
     Indication: CHRONIC HEPATITIS C
     Dosage: 1 DF, UNK
     Route: 048
     Dates: start: 20150122, end: 201507

REACTIONS (3)
  - Hepatic cirrhosis [Unknown]
  - Drug ineffective [Unknown]
  - Hepatitis C [Unknown]
